FAERS Safety Report 11449078 (Version 1)
Quarter: 2015Q3

REPORT INFORMATION
  Report Type: Report from Study
  Country: JP (occurrence: JP)
  Receive Date: 20150902
  Receipt Date: 20150902
  Transmission Date: 20151125
  Serious: Yes (Hospitalization)
  Sender: FDA-Public Use
  Company Number: JP-ASTRAZENECA-2015SE71061

PATIENT
  Age: 75 Year
  Sex: Female
  Weight: 56 kg

DRUGS (13)
  1. HUMALOG MIX [Concomitant]
     Active Substance: INSULIN LISPRO
     Route: 065
     Dates: start: 20140715, end: 20140804
  2. LANSOPRAZOLE. [Concomitant]
     Active Substance: LANSOPRAZOLE
     Route: 048
  3. HUMALOG MIX [Concomitant]
     Active Substance: INSULIN LISPRO
     Route: 065
     Dates: start: 20140805, end: 20140818
  4. GLACTIV [Concomitant]
     Active Substance: SITAGLIPTIN
     Indication: TYPE 2 DIABETES MELLITUS
     Route: 048
     Dates: end: 20150414
  5. DIART [Concomitant]
     Active Substance: AZOSEMIDE
     Route: 048
     Dates: end: 20150414
  6. AMLODIPINE [Concomitant]
     Active Substance: AMLODIPINE BESYLATE
     Route: 048
  7. ALDACTONE A [Concomitant]
     Active Substance: SPIRONOLACTONE
     Route: 048
     Dates: end: 20140901
  8. FORXIGA [Suspect]
     Active Substance: DAPAGLIFLOZIN
     Indication: TYPE 2 DIABETES MELLITUS
     Route: 048
     Dates: start: 20140709, end: 20150407
  9. FLUITRAN [Concomitant]
     Active Substance: TRICHLORMETHIAZIDE
     Route: 048
     Dates: end: 20140819
  10. HUMALOG MIX [Concomitant]
     Active Substance: INSULIN LISPRO
     Route: 065
     Dates: start: 20140709, end: 20140714
  11. DIOVAN [Concomitant]
     Active Substance: VALSARTAN
     Route: 048
  12. HUMALOG MIX [Concomitant]
     Active Substance: INSULIN LISPRO
     Route: 065
     Dates: end: 20140708
  13. ATORVASTATIN [Concomitant]
     Active Substance: ATORVASTATIN
     Route: 048

REACTIONS (5)
  - Pulmonary congestion [Recovered/Resolved]
  - Hyperkalaemia [Recovered/Resolved]
  - Oedema [Recovered/Resolved]
  - Renal impairment [Recovering/Resolving]
  - Cardiac failure [Recovered/Resolved]

NARRATIVE: CASE EVENT DATE: 20140823
